FAERS Safety Report 4375730-0 (Version None)
Quarter: 2004Q2

REPORT INFORMATION
  Report Type: 
  Country: None (occurrence: None)
  Receive Date: 20040608
  Receipt Date: 20030325
  Transmission Date: 20050107
  Serious: Yes (Other)
  Sender: FDA-Public Use
  Company Number: 200310990BCC

PATIENT
  Age: 48 Year
  Sex: Male
  Weight: 226.7985 kg

DRUGS (5)
  1. ALEVE [Suspect]
     Indication: ARTHRITIS
     Dosage: 220 MG, TID, ORAL
     Route: 048
     Dates: start: 20030323, end: 20030324
  2. ALEVE [Suspect]
     Indication: ARTHRITIS
     Dosage: 220 MG, TID, ORAL
     Route: 048
     Dates: start: 20030325
  3. ALEVE [Suspect]
  4. METHADONE HCL [Concomitant]
  5. HYDROCHLOROTHIAZIDE [Concomitant]

REACTIONS (1)
  - DYSPNOEA [None]
